FAERS Safety Report 12609628 (Version 2)
Quarter: 2016Q3

REPORT INFORMATION
  Report Type: Spontaneous
  Country: US (occurrence: US)
  Receive Date: 20160801
  Receipt Date: 20160804
  Transmission Date: 20161109
  Serious: Yes (Hospitalization)
  Sender: FDA-Public Use
  Company Number: US-HORIZON-BUP-RAV-0086-2016

PATIENT
  Age: 18 Year
  Sex: Male

DRUGS (6)
  1. ARGININE [Concomitant]
     Active Substance: ARGININE
  2. CYCLINEX-2 [Concomitant]
  3. BUPHENYL [Suspect]
     Active Substance: SODIUM PHENYLBUTYRATE
     Indication: ARGININOSUCCINATE LYASE DEFICIENCY
     Dosage: 2 TABLETS TWICE A DAY
     Route: 048
  4. POTASSIUM [Concomitant]
     Active Substance: POTASSIUM
  5. CALCIUM [Concomitant]
     Active Substance: CALCIUM
  6. RAVICTI [Suspect]
     Active Substance: GLYCEROL PHENYLBUTYRATE
     Indication: ARGININOSUCCINATE LYASE DEFICIENCY

REACTIONS (5)
  - Weight decreased [Recovered/Resolved]
  - Asthenia [Recovered/Resolved]
  - Blood potassium decreased [Unknown]
  - Hyperammonaemic crisis [Recovered/Resolved]
  - Blood calcium decreased [Unknown]
